FAERS Safety Report 6086536-9 (Version None)
Quarter: 2009Q1

REPORT INFORMATION
  Report Type: 
  Country: None (occurrence: None)
  Receive Date: 20090223
  Receipt Date: 20090217
  Transmission Date: 20090719
  Serious: Yes (Hospitalization)
  Sender: FDA-Public Use
  Company Number: JP-BRISTOL-MYERS SQUIBB COMPANY-14340921

PATIENT
  Age: 45 Year
  Sex: Male

DRUGS (11)
  1. MAXIPIME [Suspect]
     Indication: FEBRILE NEUTROPENIA
     Route: 041
     Dates: start: 20040402, end: 20040407
  2. ENDOXAN [Suspect]
     Indication: LYMPHOMA
     Route: 041
     Dates: start: 20040321, end: 20040321
  3. RITUXAN [Suspect]
     Indication: LYMPHOMA
     Route: 042
     Dates: start: 20040319, end: 20040319
  4. TOBRACIN [Suspect]
     Indication: FEBRILE NEUTROPENIA
     Route: 041
     Dates: start: 20040402, end: 20040407
  5. LASTET [Suspect]
     Indication: LYMPHOMA
     Route: 041
     Dates: start: 20040321, end: 20040323
  6. DECADRON [Suspect]
     Indication: LYMPHOMA
     Route: 041
     Dates: start: 20040321, end: 20040323
  7. CYLOCIDE [Suspect]
     Indication: LYMPHOMA
     Route: 041
     Dates: start: 20040322, end: 20040323
  8. PENTCILLIN [Suspect]
     Indication: FEBRILE NEUTROPENIA
     Route: 041
     Dates: start: 20040329, end: 20040401
  9. AMIKACIN SULFATE [Suspect]
     Indication: FEBRILE NEUTROPENIA
     Route: 041
     Dates: start: 20040329, end: 20040401
  10. DOXORUBICIN HCL [Concomitant]
     Route: 042
  11. ONCOVIN [Concomitant]
     Route: 042

REACTIONS (1)
  - STEVENS-JOHNSON SYNDROME [None]
